FAERS Safety Report 7121867-2 (Version None)
Quarter: 2010Q4

REPORT INFORMATION
  Report Type: 
  Country: None (occurrence: None)
  Receive Date: 20101124
  Receipt Date: 20101116
  Transmission Date: 20110411
  Serious: Yes (Congenital Anomaly)
  Sender: FDA-Public Use
  Company Number: CA-ROCHE-742388

PATIENT

DRUGS (1)
  1. ACCUTANE [Suspect]
     Route: 064
     Dates: start: 19870101

REACTIONS (1)
  - CONGENITAL ANOMALY [None]
